FAERS Safety Report 26208114 (Version 1)
Quarter: 2025Q4

REPORT INFORMATION
  Report Type: Spontaneous
  Country: IL (occurrence: IL)
  Receive Date: 20251229
  Receipt Date: 20251229
  Transmission Date: 20260118
  Serious: Yes (Other)
  Sender: STEMLINE THERAPEUTICS
  Company Number: IL-STEMLINE THERAPEUTICS, INC-2025-STML-IL004372

PATIENT

DRUGS (1)
  1. ELZONRIS [Suspect]
     Active Substance: TAGRAXOFUSP-ERZS
     Indication: Blastic plasmacytoid dendritic cell neoplasia
     Dosage: UNK
     Route: 065
     Dates: start: 20250905

REACTIONS (2)
  - Bone marrow necrosis [Not Recovered/Not Resolved]
  - Neutropenia [Not Recovered/Not Resolved]
